FAERS Safety Report 24346706 (Version 2)
Quarter: 2024Q4

REPORT INFORMATION
  Report Type: Report from Study
  Country: DE (occurrence: DE)
  Receive Date: 20240921
  Receipt Date: 20241001
  Transmission Date: 20250115
  Serious: Yes (Life-Threatening)
  Sender: ASTELLAS
  Company Number: DE-GILEAD-2024-0688096

PATIENT
  Age: 59 Year
  Sex: Male
  Weight: 86 kg

DRUGS (4)
  1. AMPHOTERICIN B [Suspect]
     Active Substance: AMPHOTERICIN B
     Indication: Product used for unknown indication
     Route: 042
  2. GEMTUZUMAB OZOGAMICIN [Suspect]
     Active Substance: GEMTUZUMAB OZOGAMICIN
     Indication: Acute monocytic leukaemia
     Dosage: UNK
     Route: 042
     Dates: start: 20240905
  3. CYTARABINE [Concomitant]
     Active Substance: CYTARABINE
     Indication: Acute monocytic leukaemia
     Dosage: UNK
     Route: 065
     Dates: start: 20240905, end: 20240911
  4. DAUNORUBICIN [Concomitant]
     Active Substance: DAUNORUBICIN
     Indication: Acute monocytic leukaemia
     Dosage: UNK
     Route: 065
     Dates: start: 20240905, end: 20240907

REACTIONS (1)
  - Drug hypersensitivity [Recovered/Resolved]

NARRATIVE: CASE EVENT DATE: 20240916
